FAERS Safety Report 6703790-8 (Version None)
Quarter: 2010Q2

REPORT INFORMATION
  Report Type: 
  Country: None (occurrence: None)
  Receive Date: 20100430
  Receipt Date: 20100422
  Transmission Date: 20101027
  Serious: Yes (Hospitalization, Other)
  Sender: FDA-Public Use
  Company Number: NO-SANOFI-AVENTIS-2010SA024480

PATIENT

DRUGS (1)
  1. ARAVA [Suspect]

REACTIONS (1)
  - HEPATIC FAILURE [None]
